FAERS Safety Report 15265985 (Version 1)
Quarter: 2018Q3

REPORT INFORMATION
  Report Type: Report from Study
  Country: US (occurrence: US)
  Receive Date: 20180810
  Receipt Date: 20180810
  Transmission Date: 20181010
  Serious: Yes (Life-Threatening)
  Sender: FDA-Public Use
  Company Number: US-JNJFOC-20180808909

PATIENT
  Sex: Female

DRUGS (1)
  1. REMICADE [Suspect]
     Active Substance: INFLIXIMAB
     Indication: CROHN^S DISEASE
     Route: 042
     Dates: start: 201801, end: 201807

REACTIONS (4)
  - Infusion related reaction [Unknown]
  - Erythema [Unknown]
  - Dyspnoea [Unknown]
  - Throat tightness [Unknown]

NARRATIVE: CASE EVENT DATE: 201807
